FAERS Safety Report 9768987 (Version 1)
Quarter: 2013Q4

REPORT INFORMATION
  Report Type: Spontaneous
  Country: FR (occurrence: None)
  Receive Date: 20131216
  Receipt Date: 20131216
  Transmission Date: 20140711
  Serious: Yes (Other)
  Sender: FDA-Public Use
  Company Number: SYM-2013-13807

PATIENT
  Age: 66 Year
  Sex: Female

DRUGS (7)
  1. 5 FU (FLUOROURACIL) (SOLUTION FOR INFUSION) (FLUOROURACIL) [Suspect]
     Indication: COLORECTAL CANCER METASTATIC
     Route: 040
     Dates: start: 20130918, end: 20130918
  2. AFLIBERCEPT (AFLIBERCEPT) (SOLUTION FOR INFUSION) (AFLIBERCEPT) [Suspect]
     Indication: COLORECTAL CANCER METASTATIC
     Route: 041
     Dates: start: 20130918, end: 20130918
  3. IRINOTECAN (IRINOTECAN) (SOLUTION FOR INFUSION) (IRINOTECAN) [Suspect]
     Route: 041
     Dates: start: 20130918, end: 20130918
  4. LEUCOVORIN (FOLINIC ACID) (SOLUTION FOR INFUSION) (FOLINIC ACID) [Suspect]
     Route: 041
  5. LEVOTHYROXINE (LEVOTHYROXINE) (LEVOTHYROXINE) [Concomitant]
  6. THIOCOLCHICOSIDE (THIOCOLCHICOSIDE) (THIOCOLCHICOSIDE) [Concomitant]
  7. ANGIOTENSIN II ANTAGONISTS (ANGIOTENSIN II ANTAGONISTS, PLAIN) (NULL) [Concomitant]

REACTIONS (5)
  - Pain in jaw [None]
  - Osteonecrosis [None]
  - Bacterial infection [None]
  - Tooth loss [None]
  - Tooth disorder [None]
